FAERS Safety Report 25317868 (Version 1)
Quarter: 2025Q2

REPORT INFORMATION
  Report Type: Other
  Country: CH (occurrence: CH)
  Receive Date: 20250515
  Receipt Date: 20250515
  Transmission Date: 20250716
  Serious: Yes (Hospitalization, Other)
  Sender: ANI
  Company Number: CH-ANIPHARMA-022739

PATIENT
  Age: 36 Year
  Sex: Female

DRUGS (1)
  1. MORPHINE [Suspect]
     Active Substance: MORPHINE
     Indication: Product used for unknown indication

REACTIONS (3)
  - Endocarditis [Recovering/Resolving]
  - Pseudomonas infection [Recovering/Resolving]
  - Drug abuse [Unknown]
